FAERS Safety Report 18649447 (Version 1)
Quarter: 2020Q4

REPORT INFORMATION
  Report Type: Spontaneous
  Country: US (occurrence: US)
  Receive Date: 20201222
  Receipt Date: 20201222
  Transmission Date: 20210114
  Serious: Yes (Hospitalization)
  Sender: FDA-Public Use
  Company Number: None

PATIENT
  Age: 72 Year
  Sex: Male
  Weight: 71.4 kg

DRUGS (3)
  1. DEXAMETHASONE. [Suspect]
     Active Substance: DEXAMETHASONE
     Dates: end: 20201210
  2. OLANZAPINE. [Suspect]
     Active Substance: OLANZAPINE
     Dates: end: 20201210
  3. ZOFRAN [Suspect]
     Active Substance: ONDANSETRON HYDROCHLORIDE
     Dates: end: 20201209

REACTIONS (1)
  - Sinus bradycardia [None]

NARRATIVE: CASE EVENT DATE: 20201210
